FAERS Safety Report 4310834-X (Version None)
Quarter: 2004Q1

REPORT INFORMATION
  Report Type: 
  Country: None (occurrence: None)
  Receive Date: 20040302
  Receipt Date: 20040218
  Transmission Date: 20041129
  Serious: Yes (Death)
  Sender: FDA-Public Use
  Company Number: US-JNJFOC-20040102464

PATIENT
  Age: 47 Year
  Sex: Female

DRUGS (1)
  1. REMICADE [Suspect]
     Indication: RHEUMATOID ARTHRITIS
     Dosage: LAST DOSE NOVEMBER 2003
     Dates: start: 20030501, end: 20031101

REACTIONS (30)
  - ALANINE AMINOTRANSFERASE INCREASED [None]
  - ASPARTATE AMINOTRANSFERASE INCREASED [None]
  - ASTHENIA [None]
  - BRAIN OEDEMA [None]
  - CEREBROVASCULAR ACCIDENT [None]
  - COMA [None]
  - DIALYSIS [None]
  - DYSPNOEA [None]
  - DYSPNOEA EXERTIONAL [None]
  - HYDROCEPHALUS [None]
  - HYPERKALAEMIA [None]
  - LEUKOCYTOSIS [None]
  - MENTAL IMPAIRMENT [None]
  - METABOLIC ACIDOSIS [None]
  - MULTI-ORGAN FAILURE [None]
  - NAUSEA [None]
  - NORMOCHROMIC NORMOCYTIC ANAEMIA [None]
  - OESOPHAGEAL STENOSIS [None]
  - OROPHARYNGEAL SWELLING [None]
  - PULMONARY EMBOLISM [None]
  - RENAL FAILURE ACUTE [None]
  - RESPIRATORY ARREST [None]
  - SEPSIS SYNDROME [None]
  - SINUS TACHYCARDIA [None]
  - SUBARACHNOID HAEMORRHAGE [None]
  - SYSTEMIC LUPUS ERYTHEMATOSUS [None]
  - THROMBOCYTOPENIA [None]
  - URINARY TRACT INFECTION [None]
  - VOMITING [None]
  - WEIGHT DECREASED [None]
